FAERS Safety Report 8625056-1 (Version None)
Quarter: 2012Q3

REPORT INFORMATION
  Report Type: 
  Country: None (occurrence: None)
  Receive Date: 20120827
  Receipt Date: 20120820
  Transmission Date: 20120928
  Serious: Yes (Hospitalization, Other)
  Sender: FDA-Public Use
  Company Number: DK-PFIZER INC-2012010087

PATIENT
  Age: 65 Year
  Sex: Female

DRUGS (1)
  1. CHANTIX [Suspect]
     Indication: EX-TOBACCO USER
     Dosage: 0.5 AND 1MG
     Dates: start: 20061218, end: 20090101

REACTIONS (8)
  - CARDIAC DISORDER [None]
  - PALPITATIONS [None]
  - SUICIDAL IDEATION [None]
  - MEMORY IMPAIRMENT [None]
  - HALLUCINATION [None]
  - DIZZINESS [None]
  - MALAISE [None]
  - ARTHROPATHY [None]
